FAERS Safety Report 20688300 (Version 1)
Quarter: 2022Q2

REPORT INFORMATION
  Report Type: Spontaneous
  Country: HR (occurrence: HR)
  Receive Date: 20220408
  Receipt Date: 20220408
  Transmission Date: 20220721
  Serious: Yes (Other)
  Sender: FDA-Public Use
  Company Number: None

PATIENT
  Age: 63 Year
  Sex: Female

DRUGS (3)
  1. VENLAFAXINE HYDROCHLORIDE [Suspect]
     Active Substance: VENLAFAXINE HYDROCHLORIDE
     Dosage: UNK - ^PUNO^,DURATION 1DAYS
     Route: 048
     Dates: start: 20211201, end: 20211201
  2. OXAZEPAM [Suspect]
     Active Substance: OXAZEPAM
     Dosage: UNK - ^PUNO^, DURATION 1DAYS,
     Route: 048
     Dates: start: 20211201, end: 20211201
  3. LAMICTAL [Suspect]
     Active Substance: LAMOTRIGINE
     Dosage: UNK - ^PUNO^,DURATION 1DAYS,
     Route: 048
     Dates: start: 20211201, end: 20211201

REACTIONS (5)
  - Respiratory depression [Unknown]
  - Slow response to stimuli [Unknown]
  - Somnolence [Unknown]
  - Suicide attempt [Unknown]
  - Intentional overdose [Unknown]

NARRATIVE: CASE EVENT DATE: 20211201
